FAERS Safety Report 23547344 (Version 3)
Quarter: 2024Q2

REPORT INFORMATION
  Report Type: Spontaneous
  Country: FR (occurrence: FR)
  Receive Date: 20240221
  Receipt Date: 20240401
  Transmission Date: 20240716
  Serious: Yes (Death)
  Sender: FDA-Public Use
  Company Number: FR-AFSSAPS-AN2024000183

PATIENT
  Age: 99 Year
  Sex: Male
  Weight: 55 kg

DRUGS (7)
  1. CANDESARTAN [Suspect]
     Active Substance: CANDESARTAN
     Indication: Product used for unknown indication
     Dosage: 16 MILLIGRAM, IN TOTAL
     Route: 048
     Dates: start: 20240103, end: 20240103
  2. LERCANIDIPINE [Suspect]
     Active Substance: LERCANIDIPINE
     Indication: Product used for unknown indication
     Dosage: 50 MILLIGRAM, IN TOTAL
     Route: 048
     Dates: start: 20240103, end: 20240103
  3. LERCANIDIPINE [Suspect]
     Active Substance: LERCANIDIPINE
     Dosage: 50 MILLIGRAM, IN TOTAL
     Route: 048
     Dates: start: 20240103, end: 20240103
  4. VALACYCLOVIR HYDROCHLORIDE [Suspect]
     Active Substance: VALACYCLOVIR HYDROCHLORIDE
     Indication: Product used for unknown indication
     Dosage: 500 MILLIGRAM, IN TOTAL
     Route: 048
     Dates: start: 20240103, end: 20240103
  5. REVLIMID [Suspect]
     Active Substance: LENALIDOMIDE
     Indication: Product used for unknown indication
     Dosage: 1 DOSAGE FORM, IN TOTAL
     Route: 048
     Dates: start: 20240103, end: 20240103
  6. POTASSIUM CHLORIDE [Suspect]
     Active Substance: POTASSIUM CHLORIDE
     Indication: Product used for unknown indication
     Dosage: 1 DOSAGE FORM, IN TOTAL
     Route: 048
     Dates: start: 20240103, end: 20240103
  7. TRABECTEDIN [Suspect]
     Active Substance: TRABECTEDIN
     Indication: Product used for unknown indication
     Dosage: UNK
     Route: 065

REACTIONS (2)
  - Hypotension [Fatal]
  - Wrong patient received product [Unknown]

NARRATIVE: CASE EVENT DATE: 20240103
